FAERS Safety Report 6077186-9 (Version None)
Quarter: 2009Q1

REPORT INFORMATION
  Report Type: 
  Country: None (occurrence: None)
  Receive Date: 20090211
  Receipt Date: 20090202
  Transmission Date: 20090719
  Serious: Yes (Hospitalization, Other)
  Sender: FDA-Public Use
  Company Number: 1000003634

PATIENT
  Age: 76 Year
  Sex: Female
  Weight: 65 kg

DRUGS (3)
  1. CITALOPRAM HYDROBROMIDE [Suspect]
     Dosage: 20-40 MG (ONCE),ORAL
     Route: 048
     Dates: start: 20090116, end: 20090116
  2. ARLEVERT (TABLETS) [Suspect]
     Dosage: 3-4 TABLETS (ONCE),ORAL
     Route: 048
     Dates: start: 20090116, end: 20090116
  3. EXELON [Suspect]
     Dosage: 9-12 MG (ONCE),ORAL
     Route: 048
     Dates: start: 20090116, end: 20090116

REACTIONS (7)
  - APHASIA [None]
  - ATAXIA [None]
  - CONFUSIONAL STATE [None]
  - DIZZINESS [None]
  - DRUG ADMINISTRATION ERROR [None]
  - NAUSEA [None]
  - VOMITING [None]
